FAERS Safety Report 10946215 (Version 1)
Quarter: 2015Q1

REPORT INFORMATION
  Report Type: Report from Study
  Country: DE (occurrence: DE)
  Receive Date: 20150323
  Receipt Date: 20150323
  Transmission Date: 20150721
  Serious: Yes (Other)
  Sender: FDA-Public Use
  Company Number: DE-RB PHARMACEUTICALS LIMITED-RB-077222-2015

PATIENT
  Age: 37 Year
  Sex: Male

DRUGS (1)
  1. SUBUTEX [Suspect]
     Active Substance: BUPRENORPHINE HYDROCHLORIDE
     Indication: DRUG DEPENDENCE
     Dosage: 16 MG TO 7 MG
     Route: 065
     Dates: start: 2014

REACTIONS (1)
  - Weight decreased [Unknown]

NARRATIVE: CASE EVENT DATE: 2014
